FAERS Safety Report 10612394 (Version 3)
Quarter: 2015Q1

REPORT INFORMATION
  Report Type: Spontaneous
  Country: IT (occurrence: IT)
  Receive Date: 20141127
  Receipt Date: 20150116
  Transmission Date: 20150720
  Serious: Yes (Other)
  Sender: FDA-Public Use
  Company Number: IT-ACCORD-027248

PATIENT
  Age: 65 Year
  Sex: Female
  Weight: 90 kg

DRUGS (11)
  1. PARACETAMOL KABI [Concomitant]
     Indication: PREMEDICATION
     Dosage: 100 MG
     Route: 042
     Dates: start: 20140904, end: 20140904
  2. RANITIDINE [Concomitant]
     Active Substance: RANITIDINE\RANITIDINE HYDROCHLORIDE
     Indication: PREMEDICATION
     Dosage: 50 MG
     Dates: start: 20140904, end: 20140904
  3. FOSICOMBI [Concomitant]
     Active Substance: FOSINOPRIL SODIUM\HYDROCHLOROTHIAZIDE
     Route: 048
     Dates: start: 20000101, end: 20141119
  4. MABTHERA [Suspect]
     Active Substance: RITUXIMAB
     Indication: NON-HODGKIN^S LYMPHOMA
     Dosage: EXPIRY DATE: 11-JAN-2015, ?ALSO RECEIVED 100 MG (BATCH NUMBER: H0154B03, EXPIRE DATE: MAY-2016)
     Route: 042
     Dates: start: 20131125
  5. TRIMETON [Concomitant]
     Active Substance: CHLORPHENIRAMINE MALEATE
     Indication: PREMEDICATION
     Dosage: 10 MG/ML
     Route: 042
     Dates: start: 20140904, end: 20140904
  6. PEGFILGRASTIM [Concomitant]
     Active Substance: PEGFILGRASTIM
  7. GEMCITABINE/GEMCITABINE HYDROCHLORIDE [Suspect]
     Active Substance: GEMCITABINE\GEMCITABINE HYDROCHLORIDE
     Indication: NON-HODGKIN^S LYMPHOMA
     Dosage: ON 03-OCT-2014, DOSE ADMINISTERED: 1500 MG,GEMOX CHEMOTHERAPY CYCLE
     Dates: start: 20140728
  8. FLEBOCORTID RITCHER [Concomitant]
     Indication: PREMEDICATION
     Dosage: 100 MG
     Route: 042
     Dates: start: 20140904, end: 20140904
  9. OMEPRAZEN [Concomitant]
     Active Substance: OMEPRAZOLE
     Route: 048
     Dates: start: 20131118, end: 20141119
  10. OXALIPLATIN. [Suspect]
     Active Substance: OXALIPLATIN
     Indication: NON-HODGKIN^S LYMPHOMA
     Route: 042
     Dates: start: 20140728
  11. GLUCOPHAGE [Concomitant]
     Active Substance: METFORMIN HYDROCHLORIDE
     Dosage: 850 MG
     Route: 048
     Dates: start: 20000101, end: 20141119

REACTIONS (3)
  - Abdominal pain upper [Recovering/Resolving]
  - Vomiting [Recovering/Resolving]
  - Off label use [Unknown]

NARRATIVE: CASE EVENT DATE: 20140908
